FAERS Safety Report 8855541 (Version 1)
Quarter: 2012Q4

REPORT INFORMATION
  Report Type: 
  Country: US (occurrence: US)
  Receive Date: 20121023
  Receipt Date: 20121023
  Transmission Date: 20130627
  Serious: No
  Sender: FDA-Public Use
  Company Number: US-AMGEN-USASP2012060005

PATIENT
  Age: 65 Year
  Sex: Female
  Weight: 83.9 kg

DRUGS (12)
  1. ENBREL [Suspect]
     Indication: PRODUCT USED FOR UNKNOWN INDICATION
     Dosage: 50 mg/ml, qwk
     Route: 058
  2. VESICARE [Concomitant]
     Dosage: 5 mg, UNK
  3. ATENOLOL [Concomitant]
     Dosage: 100 mg, UNK
  4. CELEBREX [Concomitant]
     Dosage: 200 mg, UNK
  5. GABAPENTIN [Concomitant]
     Dosage: 100 mg, UNK
  6. ARAVA [Concomitant]
     Dosage: 20 mg, UNK
  7. FUROSEMIDE [Concomitant]
     Dosage: 40 mg, UNK
  8. PRILOSEC                           /00661201/ [Concomitant]
     Dosage: 20 mg, UNK
  9. KLOR-CON M10 [Concomitant]
     Dosage: 10 mEq, UNK
  10. MULTIVITAMIN                       /00097801/ [Concomitant]
     Dosage: UNK
  11. CALCIUM [Concomitant]
     Dosage: 500 UNK, UNK
  12. HYDROCOBAMINE [Concomitant]
     Dosage: 10-300mg

REACTIONS (2)
  - Arthralgia [Unknown]
  - Joint swelling [Unknown]
